FAERS Safety Report 13562830 (Version 1)
Quarter: 2017Q2

REPORT INFORMATION
  Report Type: Spontaneous
  Country: US (occurrence: US)
  Receive Date: 20170518
  Receipt Date: 20170518
  Transmission Date: 20170830
  Serious: Yes (Hospitalization)
  Sender: FDA-Public Use
  Company Number: None

PATIENT
  Age: 74 Year
  Sex: Female

DRUGS (2)
  1. ARANESP [Suspect]
     Active Substance: DARBEPOETIN ALFA
     Indication: CHRONIC KIDNEY DISEASE
     Dosage: 300MG Q 2 WEEK SC
     Route: 058
     Dates: start: 20150929
  2. ARANESP [Suspect]
     Active Substance: DARBEPOETIN ALFA
     Indication: ANAEMIA
     Dosage: 300MG Q 2 WEEK SC
     Route: 058
     Dates: start: 20150929

REACTIONS (4)
  - Application site phlebitis [None]
  - Pneumonia [None]
  - Embolism [None]
  - Cardiac failure congestive [None]

NARRATIVE: CASE EVENT DATE: 20170404
